FAERS Safety Report 5097331-1 (Version None)
Quarter: 2006Q3

REPORT INFORMATION
  Report Type: 
  Country: None (occurrence: None)
  Receive Date: 20060901
  Receipt Date: 20060815
  Transmission Date: 20061208
  Serious: Yes (Other)
  Sender: FDA-Public Use
  Company Number: US200607004113

PATIENT
  Age: 47 Year
  Sex: Female

DRUGS (3)
  1. HUMAN INSULIN (RDNA ORIGIN)(HUMAN INSULIN (RDNA ORIGIN) [Suspect]
     Indication: DIABETES MELLITUS
     Dates: start: 19800101
  2. ILETIN [Suspect]
     Indication: DIABETES MELLITUS
  3. ILETIN [Suspect]
     Indication: DIABETES MELLITUS

REACTIONS (5)
  - BLINDNESS [None]
  - DIABETIC RETINOPATHY [None]
  - RETINAL HAEMORRHAGE [None]
  - SCAR [None]
  - VISUAL ACUITY REDUCED [None]
